FAERS Safety Report 8837092 (Version 2)
Quarter: 2012Q4

REPORT INFORMATION
  Report Type: Report from Study
  Country: DE (occurrence: DE)
  Receive Date: 20121011
  Receipt Date: 20121015
  Transmission Date: 20130627
  Serious: Yes (Death, Hospitalization)
  Sender: FDA-Public Use
  Company Number: DE-ROCHE-1143995

PATIENT
  Age: 72 Year
  Sex: Female

DRUGS (4)
  1. BEVACIZUMAB [Suspect]
     Indication: OVARIAN CANCER
     Dosage: Last dose prior to Sae on 03 Sep 2012
     Route: 042
     Dates: start: 20120723
  2. PACLITAXEL [Suspect]
     Indication: OVARIAN CANCER
     Dosage: last dose prior to sae on 03 sep 2012
     Route: 042
     Dates: start: 20120723
  3. CARBOPLATIN [Suspect]
     Indication: OVARIAN CANCER
     Dosage: last dose prior to sae on 24 Sep 2012
     Route: 042
     Dates: start: 20120723
  4. ENALAPRIL [Concomitant]
     Indication: HYPOTENSION
     Route: 065
     Dates: start: 20121006

REACTIONS (2)
  - Myocardial infarction [Fatal]
  - Cardiac arrest [Fatal]
